FAERS Safety Report 4556381-1 (Version None)
Quarter: 2005Q1

REPORT INFORMATION
  Report Type: 
  Country: None (occurrence: None)
  Receive Date: 20050103
  Receipt Date: 20040820
  Transmission Date: 20050727
  Serious: Yes (Other)
  Sender: FDA-Public Use
  Company Number: 2004UW17709

PATIENT
  Age: 65 Year
  Sex: Female
  Weight: 53.0709 kg

DRUGS (2)
  1. CRESTOR [Suspect]
     Indication: BLOOD CHOLESTEROL INCREASED
     Dosage: 10 MG PO
     Route: 048
     Dates: start: 20040801
  2. TOPROL-XL [Concomitant]

REACTIONS (4)
  - ARTHRALGIA [None]
  - EYE PAIN [None]
  - EYELID OEDEMA [None]
  - MYALGIA [None]
